FAERS Safety Report 11357270 (Version 1)
Quarter: 2015Q3

REPORT INFORMATION
  Report Type: Spontaneous
  Country: US (occurrence: US)
  Receive Date: 20150803
  Receipt Date: 20150803
  Transmission Date: 20151125
  Serious: No
  Sender: FDA-Public Use
  Company Number: US-ELI_LILLY_AND_COMPANY-US201309005712

PATIENT
  Sex: Male
  Weight: 52.15 kg

DRUGS (1)
  1. STRATTERA [Suspect]
     Active Substance: ATOMOXETINE HYDROCHLORIDE
     Indication: ATTENTION DEFICIT/HYPERACTIVITY DISORDER
     Dosage: 10 MG, QD
     Route: 048
     Dates: start: 20130705, end: 20130808

REACTIONS (3)
  - Ocular hyperaemia [Recovered/Resolved]
  - Eye pain [Recovered/Resolved]
  - Drug dose omission [Recovered/Resolved]

NARRATIVE: CASE EVENT DATE: 2013
